FAERS Safety Report 17108934 (Version 1)
Quarter: 2019Q4

REPORT INFORMATION
  Report Type: Spontaneous
  Country: US (occurrence: US)
  Receive Date: 20191203
  Receipt Date: 20191203
  Transmission Date: 20200122
  Serious: No
  Sender: FDA-Public Use
  Company Number: US-PERRIGO-19US002157

PATIENT
  Sex: Female

DRUGS (1)
  1. BACITRACIN. [Suspect]
     Active Substance: BACITRACIN
     Indication: EYE INFECTION
     Dosage: 1 APPLICATION TO BOTH EYELIDS, TID
     Route: 061
     Dates: start: 20190211, end: 20190213

REACTIONS (6)
  - Erythema of eyelid [Not Recovered/Not Resolved]
  - Swelling of eyelid [Recovered/Resolved]
  - Eye pain [Not Recovered/Not Resolved]
  - Eyelid exfoliation [Recovered/Resolved]
  - Eyelids pruritus [Not Recovered/Not Resolved]
  - Drug ineffective [Unknown]

NARRATIVE: CASE EVENT DATE: 201902
